FAERS Safety Report 17516584 (Version 5)
Quarter: 2020Q4

REPORT INFORMATION
  Report Type: Spontaneous
  Country: US (occurrence: US)
  Receive Date: 20200309
  Receipt Date: 20201218
  Transmission Date: 20210113
  Serious: No
  Sender: FDA-Public Use
  Company Number: US-VERTEX PHARMACEUTICALS-2020-001871

PATIENT
  Age: 44 Year
  Sex: Female
  Weight: 61 kg

DRUGS (10)
  1. L-LYSINE [LYSINE] [Concomitant]
  2. BACTRIM [Concomitant]
     Active Substance: SULFAMETHOXAZOLE\TRIMETHOPRIM
  3. VITAMIN C [Concomitant]
     Active Substance: ASCORBIC ACID
  4. PULMOZYME [Concomitant]
     Active Substance: DORNASE ALFA
  5. VITAMIN K [PHYTOMENADIONE] [Concomitant]
  6. ULTRASE [PANCRELIPASE] [Concomitant]
  7. DUONEB [Concomitant]
     Active Substance: ALBUTEROL SULFATE\IPRATROPIUM BROMIDE
  8. SYMBICORT [Concomitant]
     Active Substance: BUDESONIDE\FORMOTEROL FUMARATE DIHYDRATE
  9. TRIKAFTA [Suspect]
     Active Substance: ELEXACAFTOR\IVACAFTOR\TEZACAFTOR
     Indication: CYSTIC FIBROSIS
     Dosage: 2 TABLETS OF 100MG ELEXACAFTOR/ 50 MG TEZACAFTOR/ 75 MG IVACAFTOR AM; 1 TABLET 150 MG IVACAFTOR PM
     Route: 048
     Dates: start: 20191112
  10. NAC [ACETYLCYSTEINE] [Concomitant]
     Active Substance: ACETYLCYSTEINE

REACTIONS (6)
  - Abdominal discomfort [Unknown]
  - Migraine [Not Recovered/Not Resolved]
  - Vision blurred [Not Recovered/Not Resolved]
  - Nausea [Unknown]
  - Vomiting [Not Recovered/Not Resolved]
  - Fatigue [Not Recovered/Not Resolved]

NARRATIVE: CASE EVENT DATE: 201911
